FAERS Safety Report 16543416 (Version 1)
Quarter: 2019Q3

REPORT INFORMATION
  Report Type: Spontaneous
  Country: GB (occurrence: GB)
  Receive Date: 20190709
  Receipt Date: 20190709
  Transmission Date: 20191004
  Serious: Yes (Other)
  Sender: FDA-Public Use
  Company Number: GB-AUROBINDO-07-AUR-00026

PATIENT

DRUGS (6)
  1. AMIODARONE HYDROCHLORIDE 200MG TABLETS [Suspect]
     Active Substance: AMIODARONE HYDROCHLORIDE
     Indication: VENTRICULAR TACHYCARDIA
     Dosage: 200 MILLIGRAM, ONCE A DAY
     Route: 048
  2. CARBIMAZOLE [Suspect]
     Active Substance: CARBIMAZOLE
     Dosage: 60 MILLIGRAM, ONCE A DAY
     Route: 065
  3. PREDNISOLONE. [Concomitant]
     Active Substance: PREDNISOLONE
     Indication: HYPERTHYROIDISM
     Dosage: 40 MILLIGRAM, ONCE A DAY
     Route: 065
  4. CARBIMAZOLE [Suspect]
     Active Substance: CARBIMAZOLE
     Dosage: 20 MILLIGRAM, ONCE A DAY
     Route: 065
  5. CARBIMAZOLE [Suspect]
     Active Substance: CARBIMAZOLE
     Indication: HYPERTHYROIDISM
     Dosage: 10 MILLIGRAM, ONCE A DAY
     Route: 065
  6. CARBIMAZOLE [Suspect]
     Active Substance: CARBIMAZOLE
     Dosage: 40 MILLIGRAM, ONCE A DAY
     Route: 065

REACTIONS (9)
  - Treatment failure [Unknown]
  - Toxic nodular goitre [Recovered/Resolved with Sequelae]
  - Therapeutic product effect incomplete [Unknown]
  - Weight decreased [Unknown]
  - Goitre [Recovered/Resolved with Sequelae]
  - Hyperthyroidism [Recovered/Resolved with Sequelae]
  - Thyroiditis [Unknown]
  - Palpitations [Recovered/Resolved]
  - Hypothyroidism [Recovered/Resolved with Sequelae]
